FAERS Safety Report 8038149-7 (Version None)
Quarter: 2012Q1

REPORT INFORMATION
  Report Type: 
  Country: None (occurrence: None)
  Receive Date: 20120111
  Receipt Date: 20111213
  Transmission Date: 20120608
  Serious: No
  Sender: FDA-Public Use
  Company Number: US-AMGEN-USASP2011066232

PATIENT
  Age: 59 Year
  Sex: Female

DRUGS (3)
  1. ENBREL [Suspect]
     Indication: SCLERODERMA
     Dosage: 25 MG, ONCE IN 5 DAYS
     Dates: start: 20110601
  2. ENBREL [Suspect]
     Indication: ARTHRITIS
  3. PREDNISONE TAB [Concomitant]
     Dosage: EVERY OTHER DAY AND RECENTLY STOPPED ALTOGETHER

REACTIONS (11)
  - DEPRESSION [None]
  - ABDOMINAL DISCOMFORT [None]
  - SINUS CONGESTION [None]
  - COUGH [None]
  - EYE DISORDER [None]
  - ANXIETY [None]
  - EYE PAIN [None]
  - DYSPEPSIA [None]
  - PAIN [None]
  - EYE HAEMORRHAGE [None]
  - HEADACHE [None]
